FAERS Safety Report 7920982-0 (Version None)
Quarter: 2011Q4

REPORT INFORMATION
  Report Type: 
  Country: None (occurrence: None)
  Receive Date: 20111117
  Receipt Date: 20111110
  Transmission Date: 20120403
  Serious: Yes (Other)
  Sender: FDA-Public Use
  Company Number: US-CUBIST-2011S1000778

PATIENT
  Age: 57 Year
  Sex: Male

DRUGS (1)
  1. CUBICIN [Suspect]
     Indication: STAPHYLOCOCCAL INFECTION
     Dosage: DOSE UNIT:U UNKNOWN
     Route: 065

REACTIONS (4)
  - DECREASED APPETITE [None]
  - ANURIA [None]
  - VOMITING [None]
  - BLOOD CREATININE INCREASED [None]
